FAERS Safety Report 4618024-8 (Version None)
Quarter: 2005Q1

REPORT INFORMATION
  Report Type: 
  Country: None (occurrence: None)
  Receive Date: 20050322
  Receipt Date: 20050310
  Transmission Date: 20050727
  Serious: Yes (Death)
  Sender: FDA-Public Use
  Company Number: 2005045313

PATIENT

DRUGS (1)
  1. LINEZOLID TABLET (LINEZOLID) [Suspect]
     Indication: ILL-DEFINED DISORDER

REACTIONS (3)
  - BONE MARROW DISORDER [None]
  - SEPSIS [None]
  - THROMBOCYTOPENIA [None]
